FAERS Safety Report 6693956-8 (Version None)
Quarter: 2010Q2

REPORT INFORMATION
  Report Type: 
  Country: None (occurrence: None)
  Receive Date: 20100423
  Receipt Date: 20100414
  Transmission Date: 20101027
  Serious: Yes (Hospitalization, Other)
  Sender: FDA-Public Use
  Company Number: JP-PFIZER INC-2010045559

PATIENT
  Age: 84 Year
  Sex: Female
  Weight: 65 kg

DRUGS (5)
  1. AMLODIPINE BESYLATE [Suspect]
     Indication: HYPERTENSION
     Route: 048
     Dates: start: 20080701
  2. FUROSEMIDE [Suspect]
     Indication: HYPERTENSION
     Route: 048
     Dates: start: 20080701
  3. CANDESARTAN [Suspect]
     Indication: HYPERTENSION
     Route: 048
     Dates: start: 20080701
  4. PRAVASTATIN [Suspect]
     Indication: HYPERLIPIDAEMIA
     Route: 048
     Dates: start: 20080701
  5. ROXATIDINE ACETATE [Suspect]
     Route: 048
     Dates: start: 20080701

REACTIONS (2)
  - INTERSTITIAL LUNG DISEASE [None]
  - RESPIRATORY FAILURE [None]
